FAERS Safety Report 7605065-1 (Version None)
Quarter: 2011Q3

REPORT INFORMATION
  Report Type: 
  Country: None (occurrence: None)
  Receive Date: 20110713
  Receipt Date: 20090213
  Transmission Date: 20111222
  Serious: Yes (Disabling, Other)
  Sender: FDA-Public Use
  Company Number: US-BAYER-200836437NA

PATIENT
  Age: 65 Year
  Sex: Male
  Weight: 76 kg

DRUGS (24)
  1. MAGNEVIST [Suspect]
     Indication: NUCLEAR MAGNETIC RESONANCE IMAGING
     Dosage: 20 ML
     Dates: start: 20061026, end: 20061026
  2. LOPRESSOR [Concomitant]
     Indication: HYPERTENSION
     Dates: start: 20070101
  3. ZOFRAN [Concomitant]
  4. MAGNEVIST [Suspect]
     Dosage: 15 ML
     Dates: start: 20061030, end: 20061030
  5. PENTOXIFYLLINE [Concomitant]
     Indication: PLATELET ADHESIVENESS DECREASED
  6. GADOLINIUM IN UNSPECIFIED DRUG [Suspect]
     Dosage: UNK, ONCE
     Dates: start: 20061002, end: 20061002
  7. VITAMIN TAB [Concomitant]
     Indication: SUPPLEMENTATION THERAPY
  8. CLONIDINE [Concomitant]
  9. DALTEPARIN SODIUM [Concomitant]
  10. GADOLINIUM IN UNSPECIFIED DRUG [Suspect]
     Dosage: UNK, ONCE
     Dates: start: 20061004, end: 20061004
  11. RENAGEL [Concomitant]
     Indication: BLOOD PHOSPHORUS DECREASED
  12. SENSIPAR [Concomitant]
     Indication: BLOOD CALCIUM DECREASED
  13. NORVASC [Concomitant]
     Indication: HYPERTENSION
     Dates: start: 20050101, end: 20060615
  14. GADOLINIUM IN UNSPECIFIED DRUG [Suspect]
     Dosage: UNK, ONCE
     Dates: start: 20060930, end: 20060930
  15. PENTOXIFYLLINE [Concomitant]
  16. MAGNEVIST [Suspect]
  17. EPOETIN ALFA [Concomitant]
     Dosage: PRN AFTER DIALYSIS
     Dates: start: 19690101
  18. FUROSEMIDE [Concomitant]
  19. LISINOPRIL [Concomitant]
  20. LOVENOX [Concomitant]
  21. PANTOTHENATE SODIUM [Concomitant]
  22. MAGNEVIST [Suspect]
  23. GADOLINIUM IN UNSPECIFIED DRUG [Suspect]
     Indication: PRODUCT USED FOR UNKNOWN INDICATION
     Dosage: UNK UNK, ONCE
     Dates: start: 20060929, end: 20060929
  24. LISINOPRIL [Concomitant]
     Indication: HYPERTENSION
     Dates: start: 20070101

REACTIONS (12)
  - JOINT STIFFNESS [None]
  - SCAR [None]
  - SKIN LESION [None]
  - MUSCULOSKELETAL STIFFNESS [None]
  - INJURY [None]
  - ANXIETY [None]
  - EMOTIONAL DISTRESS [None]
  - DEPRESSION [None]
  - NEPHROGENIC SYSTEMIC FIBROSIS [None]
  - RENAL IMPAIRMENT [None]
  - PRURITUS [None]
  - PAIN [None]
